FAERS Safety Report 6993073-3 (Version None)
Quarter: 2010Q3

REPORT INFORMATION
  Report Type: 
  Country: None (occurrence: None)
  Receive Date: 20100917
  Receipt Date: 20090904
  Transmission Date: 20110219
  Serious: No
  Sender: FDA-Public Use
  Company Number: US-ASTRAZENECA-2009SE11504

PATIENT
  Sex: Female
  Weight: 53.5 kg

DRUGS (3)
  1. SEROQUEL XR [Suspect]
     Indication: SLEEP DISORDER
     Route: 048
     Dates: start: 20090730
  2. SEROQUEL XR [Suspect]
     Route: 048
  3. NUVARING [Concomitant]
     Indication: CONTRACEPTION

REACTIONS (5)
  - DRUG DOSE OMISSION [None]
  - DRUG WITHDRAWAL SYNDROME [None]
  - OROPHARYNGEAL PAIN [None]
  - PAIN [None]
  - SOMNOLENCE [None]
